FAERS Safety Report 13767591 (Version 2)
Quarter: 2017Q3

REPORT INFORMATION
  Report Type: Spontaneous
  Country: US (occurrence: US)
  Receive Date: 20170719
  Receipt Date: 20170901
  Transmission Date: 20171127
  Serious: Yes (Other)
  Sender: FDA-Public Use
  Company Number: US-GLAXOSMITHKLINE-US2017107900

PATIENT
  Age: 52 Year
  Sex: Male

DRUGS (1)
  1. SENSODYNE PRONAMEL STRONG AND BRIGHT ENAMEL EXTRA FRESH [Suspect]
     Active Substance: POTASSIUM NITRATE\SODIUM FLUORIDE
     Indication: DENTAL CLEANING
     Dosage: UNK

REACTIONS (4)
  - Accidental device ingestion [Unknown]
  - Retching [Unknown]
  - Nausea [Unknown]
  - Accidental exposure to product [Unknown]
